FAERS Safety Report 9369391 (Version 2)
Quarter: 2013Q3

REPORT INFORMATION
  Report Type: Spontaneous
  Country: US (occurrence: US)
  Receive Date: 20130626
  Receipt Date: 20130704
  Transmission Date: 20140515
  Serious: No
  Sender: FDA-Public Use
  Company Number: US-BAYER-2013-078249

PATIENT
  Age: 70 Year
  Sex: Male
  Weight: 104.31 kg

DRUGS (1)
  1. ALEVE TABLET [Suspect]
     Dosage: UNK UNK, QD
     Route: 048
     Dates: start: 20130423

REACTIONS (2)
  - Pre-existing condition improved [None]
  - Incorrect drug administration duration [None]
